FAERS Safety Report 17635543 (Version 3)
Quarter: 2020Q2

REPORT INFORMATION
  Report Type: Spontaneous
  Country: JP (occurrence: JP)
  Receive Date: 20200406
  Receipt Date: 20200506
  Transmission Date: 20200713
  Serious: Yes (Life-Threatening, Hospitalization, Other)
  Sender: FDA-Public Use
  Company Number: JP-FERRINGPH-2020FE02191

PATIENT
  Age: 3 Year
  Sex: Male

DRUGS (10)
  1. DESMOPRESSIN [Concomitant]
     Active Substance: DESMOPRESSIN
     Indication: DIABETES INSIPIDUS
  2. GASMOTIN [Concomitant]
     Active Substance: MOSAPRIDE CITRATE
     Dosage: 0.5 G, 3 TIMES DAILY
     Route: 050
  3. MINIRINMELT [Suspect]
     Active Substance: DESMOPRESSIN ACETATE
     Dosage: 30 UG, 2 TIMES DAILY
     Route: 048
     Dates: start: 20200416
  4. THYRADIN S [Concomitant]
     Active Substance: LEVOTHYROXINE SODIUM
     Dosage: 0.8 DF, 1 TIME DAILY
     Route: 065
  5. MINIRINMELT [Suspect]
     Active Substance: DESMOPRESSIN ACETATE
     Indication: DIABETES INSIPIDUS
     Dosage: 30 UG, 2 TIMES DAILY
     Route: 050
  6. DAIKENCHUTO [Concomitant]
     Active Substance: HERBALS
     Dosage: 2.5 G, 3 TIMES DAILY
     Route: 065
  7. ELENTAL-P [Concomitant]
     Active Substance: AMINO ACIDS\CARBOHYDRATES\MINERALS\SOYBEAN OIL\VITAMINS
     Dosage: 2 DF, 4 TIMES DAILY
     Route: 050
  8. BAKTAR [Concomitant]
     Active Substance: SULFAMETHOXAZOLE\TRIMETHOPRIM
     Indication: URINARY TRACT INFECTION
     Dosage: 0.4 G, 1 TIME DAILY
     Route: 065
     Dates: start: 20200319
  9. CORTRIL [Concomitant]
     Active Substance: HYDROCORTISONE
     Dosage: 0.5 DF, 3 TIMES DAILY
     Route: 065
  10. AZUNOL #1 [Concomitant]
     Route: 065

REACTIONS (9)
  - Quadriplegia [Recovered/Resolved]
  - Wrong technique in product usage process [Unknown]
  - Urinary tract infection [Recovered/Resolved]
  - White blood cells urine positive [Recovered/Resolved]
  - Respiratory failure [Recovered/Resolved]
  - Bacteriuria [Recovered/Resolved]
  - Product administration error [Unknown]
  - Product use issue [Unknown]
  - Shock symptom [Recovered/Resolved]

NARRATIVE: CASE EVENT DATE: 202002
